FAERS Safety Report 23621790 (Version 1)
Quarter: 2024Q1

REPORT INFORMATION
  Report Type: Report from Study
  Country: US (occurrence: None)
  Receive Date: 20240312
  Receipt Date: 20240312
  Transmission Date: 20240409
  Serious: Yes (Hospitalization)
  Sender: FDA-Public Use
  Company Number: 2024A055541

PATIENT
  Sex: Male

DRUGS (1)
  1. CALQUENCE [Suspect]
     Active Substance: ACALABRUTINIB
     Indication: Chronic lymphocytic leukaemia
     Route: 048
     Dates: start: 202401

REACTIONS (5)
  - White blood cell count abnormal [Unknown]
  - Vocal cord paralysis [Unknown]
  - Dysphagia [Unknown]
  - Headache [Unknown]
  - Intentional dose omission [Unknown]
